FAERS Safety Report 5940353-6 (Version None)
Quarter: 2008Q4

REPORT INFORMATION
  Report Type: 
  Country: None (occurrence: None)
  Receive Date: 20081030
  Receipt Date: 20081015
  Transmission Date: 20090506
  Serious: Yes (Other)
  Sender: FDA-Public Use
  Company Number: JP-1167210

PATIENT
  Age: 73 Year
  Sex: Female

DRUGS (12)
  1. TRAVATAN [Suspect]
     Indication: NORMAL TENSION GLAUCOMA
     Dosage: 1 GTT OU QD
     Route: 047
     Dates: start: 20080516, end: 20080829
  2. MEVALOTIN (PREVASTATIN SODIUM) [Concomitant]
  3. LOSARTAN POTASSIUM [Concomitant]
  4. MEHYCOBAL (CYNAOCOBALAMIN) [Concomitant]
  5. ALFAROL (ALFACALICIDOL) [Concomitant]
  6. MERISLON (BETHAISTINE HYDROCHLORIDE) [Concomitant]
  7. SELBEX (TEPRENONE) [Concomitant]
  8. BIFERMIN(BIOFERMIN) [Concomitant]
  9. GANATON(ITOPRIDE HYDROCHLORIDE) [Concomitant]
  10. OMEPRAZOLE [Concomitant]
  11. DEPAS(ETIZOLAM) [Concomitant]
  12. SHAKUYAKUKANZOUTOU(SHAKUAKUKANZAOUTOU) [Concomitant]

REACTIONS (1)
  - MACULAR OEDEMA [None]
